FAERS Safety Report 22635302 (Version 2)
Quarter: 2023Q2

REPORT INFORMATION
  Report Type: Spontaneous
  Country: IT (occurrence: IT)
  Receive Date: 20230623
  Receipt Date: 20230629
  Transmission Date: 20230721
  Serious: Yes (Hospitalization)
  Sender: FDA-Public Use
  Company Number: None

PATIENT
  Age: 16 Year
  Sex: Female

DRUGS (2)
  1. ABILIFY [Suspect]
     Active Substance: ARIPIPRAZOLE
     Indication: Product used for unknown indication
     Dosage: 4 DF (INTAKE OF 4 ABILIFY TABLETS)
     Route: 048
     Dates: start: 20230526, end: 20230526
  2. LITHIUM CARBONATE [Suspect]
     Active Substance: LITHIUM CARBONATE
     Indication: Product used for unknown indication
     Dosage: 7 DF ( INTAKE OF 7 DELAYED RELEASE TABLETS)
     Route: 048
     Dates: start: 20230526, end: 20230526

REACTIONS (2)
  - Antipsychotic drug level increased [Recovering/Resolving]
  - Intentional overdose [Unknown]

NARRATIVE: CASE EVENT DATE: 20230526
